FAERS Safety Report 6478860-2 (Version None)
Quarter: 2009Q4

REPORT INFORMATION
  Report Type: 
  Country: None (occurrence: None)
  Receive Date: 20091207
  Receipt Date: 20091124
  Transmission Date: 20100525
  Serious: Yes (Other)
  Sender: FDA-Public Use
  Company Number: DE-B.I. PHARMACEUTICALS,INC./RIDGEFIELD-2009-DE-07087DE

PATIENT
  Sex: Female

DRUGS (6)
  1. VIRAMUNE [Suspect]
     Indication: HIV INFECTION
     Dosage: 200 MG / 300 MG A DAY
     Route: 048
     Dates: start: 19990423
  2. CBV [Concomitant]
     Dates: start: 19990407
  3. CBV [Concomitant]
     Dosage: 2 ANZ
     Route: 048
     Dates: start: 19990407
  4. BISOPROLOL 5 [Concomitant]
     Dosage: 5 MG
     Dates: start: 20071102
  5. DARAPRIM [Concomitant]
     Indication: TOXOPLASMOSIS
     Route: 048
  6. LEUCOVORIN CALCIUM [Concomitant]
     Dosage: 3 TABLETS/WEEK
     Dates: start: 19990423

REACTIONS (2)
  - CAESAREAN SECTION [None]
  - TOXOPLASMOSIS [None]
